FAERS Safety Report 4598798-5 (Version None)
Quarter: 2005Q1

REPORT INFORMATION
  Report Type: 
  Country: None (occurrence: None)
  Receive Date: 20050304
  Receipt Date: 20050224
  Transmission Date: 20050727
  Serious: Yes (Other)
  Sender: FDA-Public Use
  Company Number: PHFR2005GB01023

PATIENT
  Sex: Female

DRUGS (1)
  1. FEMARA [Suspect]
     Indication: BREAST CANCER
     Route: 048
     Dates: end: 20050221

REACTIONS (3)
  - ARTHRALGIA [None]
  - INTERMITTENT CLAUDICATION [None]
  - PALPITATIONS [None]
